FAERS Safety Report 5936752-9 (Version None)
Quarter: 2008Q4

REPORT INFORMATION
  Report Type: 
  Country: None (occurrence: None)
  Receive Date: 20081022
  Receipt Date: 20081010
  Transmission Date: 20090506
  Serious: Yes (Hospitalization)
  Sender: FDA-Public Use
  Company Number: 200812941

PATIENT
  Age: 63 Year
  Sex: Female
  Weight: 68.2 kg

DRUGS (12)
  1. VIVAGLOBIN [Suspect]
     Indication: PRIMARY IMMUNODEFICIENCY SYNDROME
     Dosage: 64.2 ML Q1W SC
     Route: 058
     Dates: start: 20071011
  2. VIVAGLOBIN [Suspect]
     Indication: PRIMARY IMMUNODEFICIENCY SYNDROME
     Dosage: 64.2 ML Q1W SC
     Route: 058
     Dates: start: 20080215
  3. LOTREL [Concomitant]
  4. HYDROCHLOROTHIAZIDE [Concomitant]
  5. METOPROLOL TARTRATE [Concomitant]
  6. MULTI-VITAMIN [Concomitant]
  7. ASPIRIN [Concomitant]
  8. ZOCOR [Concomitant]
  9. PROTONIX /01263202/ [Concomitant]
  10. POLYGAM S/D [Concomitant]
  11. THIACIDE [Concomitant]
  12. LOPRESSOR [Concomitant]

REACTIONS (13)
  - ATRIAL FIBRILLATION [None]
  - CAROTID ARTERY OCCLUSION [None]
  - CAROTID ARTERY STENOSIS [None]
  - DIZZINESS [None]
  - DYSPNOEA [None]
  - LOW DENSITY LIPOPROTEIN INCREASED [None]
  - MITRAL VALVE INCOMPETENCE [None]
  - PANIC ATTACK [None]
  - PRESYNCOPE [None]
  - SPINAL OSTEOARTHRITIS [None]
  - THROMBOSIS [None]
  - TRANSIENT ISCHAEMIC ATTACK [None]
  - TRICUSPID VALVE INCOMPETENCE [None]
